FAERS Safety Report 5014788-2 (Version None)
Quarter: 2006Q2

REPORT INFORMATION
  Report Type: 
  Country: None (occurrence: None)
  Receive Date: 20060531
  Receipt Date: 20060519
  Transmission Date: 20061013
  Serious: Yes (Death)
  Sender: FDA-Public Use
  Company Number: FR-ROCHE-448700

PATIENT
  Age: 55 Year
  Sex: Male

DRUGS (3)
  1. CELLCEPT [Suspect]
     Indication: PROPHYLAXIS AGAINST TRANSPLANT REJECTION
     Route: 048
     Dates: start: 19910115, end: 20060403
  2. NEO-MERCAZOLE TAB [Suspect]
     Indication: DRUG USE FOR UNKNOWN INDICATION
     Route: 048
     Dates: start: 20051115, end: 20060331
  3. PROGRAF [Suspect]
     Indication: DRUG USE FOR UNKNOWN INDICATION
     Route: 048
     Dates: start: 19910115, end: 20060403

REACTIONS (22)
  - AGRANULOCYTOSIS [None]
  - ARTERIOSCLEROSIS CORONARY ARTERY [None]
  - BLOOD CULTURE POSITIVE [None]
  - BLOOD DISORDER [None]
  - BLOOD PRESSURE DECREASED [None]
  - CEREBROVASCULAR ACCIDENT [None]
  - DIABETES MELLITUS INSULIN-DEPENDENT [None]
  - DIARRHOEA [None]
  - DISTURBANCE IN ATTENTION [None]
  - EPILEPSY [None]
  - HAEMOGLOBIN DECREASED [None]
  - HEART RATE INCREASED [None]
  - HYPERTHYROIDISM [None]
  - LIVER DISORDER [None]
  - MYOCARDIAL INFARCTION [None]
  - PERITONEAL HAEMORRHAGE [None]
  - PLATELET COUNT DECREASED [None]
  - RENAL FAILURE CHRONIC [None]
  - SEPTIC SHOCK [None]
  - SLEEP APNOEA SYNDROME [None]
  - STAPHYLOCOCCAL INFECTION [None]
  - WHITE BLOOD CELL COUNT DECREASED [None]
